FAERS Safety Report 7495161-4 (Version None)
Quarter: 2011Q2

REPORT INFORMATION
  Report Type: 
  Country: None (occurrence: None)
  Receive Date: 20110520
  Receipt Date: 20110511
  Transmission Date: 20111010
  Serious: Yes (Hospitalization, Other)
  Sender: FDA-Public Use
  Company Number: US-ASTRAZENECA-2011SE28731

PATIENT
  Age: 61 Year
  Sex: Male

DRUGS (3)
  1. NEXIUM [Suspect]
     Route: 048
  2. LIPITOR [Concomitant]
  3. CRESTOR [Concomitant]
     Route: 048

REACTIONS (3)
  - VASCULAR GRAFT [None]
  - MYOCARDIAL INFARCTION [None]
  - THROMBOSIS [None]
